FAERS Safety Report 6210952-5 (Version None)
Quarter: 2009Q2

REPORT INFORMATION
  Report Type: 
  Country: None (occurrence: None)
  Receive Date: 20090602
  Receipt Date: 20080402
  Transmission Date: 20091009
  Serious: Yes (Other)
  Sender: FDA-Public Use
  Company Number: US-ASTRAZENECA-2008UW00664

PATIENT
  Age: 412 Month
  Sex: Female
  Weight: 76.2 kg

DRUGS (17)
  1. SEROQUEL [Suspect]
     Indication: BIPOLAR DISORDER
     Dosage: 25, 100, 300 MG
     Route: 048
     Dates: start: 20050502
  2. SEROQUEL [Suspect]
     Indication: BIPOLAR I DISORDER
     Dosage: 25, 100, 300 MG
     Route: 048
     Dates: start: 20050502
  3. SEROQUEL [Suspect]
     Dosage: 100MG, 300MG, 400MG
     Route: 048
     Dates: start: 20061001, end: 20070701
  4. SEROQUEL [Suspect]
     Dosage: 100MG, 300MG, 400MG
     Route: 048
     Dates: start: 20061001, end: 20070701
  5. HALDOL [Concomitant]
     Dates: start: 20050503
  6. HALDOL [Concomitant]
     Dates: start: 20070101
  7. RISPERDAL [Concomitant]
     Dates: start: 20050101
  8. MOTRIN [Concomitant]
     Dates: start: 20051212
  9. EFFEXOR [Concomitant]
     Route: 048
     Dates: start: 20050502
  10. PAXIL [Concomitant]
     Dates: start: 20050504
  11. AMBIEN [Concomitant]
     Dates: start: 20050504
  12. LEXAPRO [Concomitant]
     Route: 048
     Dates: start: 20050503
  13. ATARAX [Concomitant]
     Indication: ANXIETY
     Route: 048
     Dates: start: 20050503
  14. XANAX [Concomitant]
     Dates: start: 20050503
  15. VALIUM [Concomitant]
     Dates: start: 20050503
  16. RESTORIL [Concomitant]
     Indication: SLEEP DISORDER
     Route: 048
     Dates: start: 20050502
  17. ATIVAN [Concomitant]
     Route: 048
     Dates: start: 20050502

REACTIONS (2)
  - DIABETES MELLITUS [None]
  - DIABETIC NEUROPATHY [None]
